FAERS Safety Report 8120792-8 (Version None)
Quarter: 2012Q1

REPORT INFORMATION
  Report Type: 
  Country: None (occurrence: None)
  Receive Date: 20120207
  Receipt Date: 20120130
  Transmission Date: 20120608
  Serious: Yes (Hospitalization)
  Sender: FDA-Public Use
  Company Number: US-BAYER-2011-034294

PATIENT
  Age: 23 Year
  Sex: Female
  Weight: 49 kg

DRUGS (1)
  1. YASMIN [Suspect]
     Indication: ORAL CONTRACEPTION
     Dosage: UNK
     Dates: start: 20060401, end: 20070901

REACTIONS (9)
  - ANXIETY [None]
  - ABDOMINAL PAIN [None]
  - BENIGN PANCREATIC NEOPLASM [None]
  - CHOLELITHIASIS [None]
  - CHEST PAIN [None]
  - EMOTIONAL DISTRESS [None]
  - SCAR [None]
  - CHOLECYSTITIS CHRONIC [None]
  - PANCREATIC NEOPLASM [None]
